APPROVED DRUG PRODUCT: ACETAMINOPHEN AND CODEINE PHOSPHATE
Active Ingredient: ACETAMINOPHEN; CODEINE PHOSPHATE
Strength: 300MG;60MG
Dosage Form/Route: TABLET;ORAL
Application: A089999 | Product #001
Applicant: CHARTWELL SCHEDULED LLC
Approved: Dec 28, 1994 | RLD: No | RS: No | Type: DISCN